FAERS Safety Report 9991099 (Version 1)
Quarter: 2014Q1

REPORT INFORMATION
  Report Type: Report from Study
  Country: US (occurrence: US)
  Receive Date: 20140310
  Receipt Date: 20140310
  Transmission Date: 20141002
  Serious: No
  Sender: FDA-Public Use
  Company Number: US-ABBVIE-13P-163-1133414-00

PATIENT
  Age: 58 Year
  Sex: Female

DRUGS (10)
  1. HUMIRA [Suspect]
     Indication: PSORIASIS
     Dates: start: 20130620
  2. FUROSEMIDE [Concomitant]
     Indication: DIURETIC THERAPY
  3. ASPIRIN (E.C.) [Concomitant]
     Indication: PRODUCT USED FOR UNKNOWN INDICATION
  4. HYDROXYZINE HCL [Concomitant]
     Indication: PRURITUS
  5. OMEPRAZOLE [Concomitant]
     Indication: GASTRIC DISORDER
  6. OMEPRAZOLE [Concomitant]
     Indication: GASTROOESOPHAGEAL REFLUX DISEASE
  7. ADVAIR [Concomitant]
     Indication: PRODUCT USED FOR UNKNOWN INDICATION
  8. MELATONIN [Concomitant]
     Indication: INSOMNIA
     Dosage: 3MG 2 PILLS AT NIGHT TIME
  9. ALBUTEROL [Concomitant]
     Indication: RESPIRATORY DISORDER
     Dosage: 0.083% 1 INHALE EVERY 6 HOURS
  10. OXYGEN [Concomitant]
     Indication: PRODUCT USED FOR UNKNOWN INDICATION
     Dosage: 24 HOURS A DAY 3 LITERS PER MINUTE

REACTIONS (2)
  - Erythema [Recovering/Resolving]
  - Pain [Recovering/Resolving]
